FAERS Safety Report 11988498 (Version 1)
Quarter: 2016Q1

REPORT INFORMATION
  Report Type: Spontaneous
  Country: CA (occurrence: CA)
  Receive Date: 20160202
  Receipt Date: 20160202
  Transmission Date: 20160526
  Serious: Yes (Death)
  Sender: FDA-Public Use
  Company Number: CA-TEVA-629676ACC

PATIENT
  Age: 83 Year
  Sex: Male

DRUGS (11)
  1. GLYBURIDE. [Suspect]
     Active Substance: GLYBURIDE
     Indication: BLOOD INSULIN
     Dosage: 20 MILLIGRAM DAILY;
     Route: 065
  2. ASPIRIN. [Concomitant]
     Active Substance: ASPIRIN
  3. PANTOPRAZOLE [Concomitant]
     Active Substance: PANTOPRAZOLE SODIUM
  4. INSULIN [Suspect]
     Active Substance: INSULIN NOS
     Indication: DIABETES MELLITUS
     Dosage: 25 IU (INTERNATIONAL UNIT) DAILY;
     Route: 065
  5. ALLOPURINOL. [Concomitant]
     Active Substance: ALLOPURINOL
  6. VITAMIN B12 [Concomitant]
     Active Substance: CYANOCOBALAMIN
  7. METOPROLOL. [Suspect]
     Active Substance: METOPROLOL
     Indication: HYPERTENSION
     Route: 065
  8. ARANESP [Suspect]
     Active Substance: DARBEPOETIN ALFA
     Indication: ANAEMIA
     Route: 042
  9. HYDROCHLOROTHIAZIDE. [Concomitant]
     Active Substance: HYDROCHLOROTHIAZIDE
  10. TAMSULOSIN [Concomitant]
     Active Substance: TAMSULOSIN
  11. AMLODIPINE [Concomitant]
     Active Substance: AMLODIPINE BESYLATE

REACTIONS (2)
  - Hypoglycaemia [Fatal]
  - Acute myocardial infarction [Fatal]
